FAERS Safety Report 10413316 (Version 1)
Quarter: 2014Q3

REPORT INFORMATION
  Report Type: Spontaneous
  Country: US (occurrence: US)
  Receive Date: 20140827
  Receipt Date: 20140827
  Transmission Date: 20150326
  Serious: Yes (Life-Threatening, Hospitalization, Other)
  Sender: FDA-Public Use
  Company Number: US-ELI_LILLY_AND_COMPANY-US201408008341

PATIENT
  Sex: Female

DRUGS (2)
  1. HUMALOG [Suspect]
     Active Substance: INSULIN LISPRO
     Indication: TYPE 1 DIABETES MELLITUS
     Dosage: UNK
     Route: 065
     Dates: start: 2013
  2. HUMALOG [Suspect]
     Active Substance: INSULIN LISPRO
     Indication: TYPE 1 DIABETES MELLITUS
     Dosage: UNK, OTHER
     Route: 058

REACTIONS (15)
  - Convulsion [Unknown]
  - Fall [Unknown]
  - Hand fracture [Unknown]
  - Urinary tract infection [Unknown]
  - Upper limb fracture [Unknown]
  - Brain injury [Unknown]
  - Convulsion [Unknown]
  - Orthostatic intolerance [Unknown]
  - Dizziness [Unknown]
  - Depressed level of consciousness [Recovered/Resolved]
  - Blood sodium decreased [Unknown]
  - Cardiac arrest [Recovered/Resolved]
  - Accident [Unknown]
  - Lower limb fracture [Unknown]
  - Blood glucose abnormal [Unknown]

NARRATIVE: CASE EVENT DATE: 2007
